FAERS Safety Report 7132149-7 (Version None)
Quarter: 2010Q4

REPORT INFORMATION
  Report Type: 
  Country: None (occurrence: None)
  Receive Date: 20101202
  Receipt Date: 20101124
  Transmission Date: 20110411
  Serious: Yes (Other)
  Sender: FDA-Public Use
  Company Number: US-SANOFI-AVENTIS-2010SA063980

PATIENT
  Age: 58 Year
  Sex: Female
  Weight: 53 kg

DRUGS (7)
  1. SOLOSTAR [Suspect]
     Dates: start: 20081201
  2. LANTUS [Suspect]
     Dosage: DOSE:13 UNIT(S)
     Route: 058
     Dates: start: 20081201, end: 20100921
  3. LANTUS [Suspect]
     Dosage: DOSE:14 UNIT(S)
     Route: 058
     Dates: start: 20100922
  4. LANTUS [Suspect]
     Dosage: DOSE:13 UNIT(S)
     Route: 058
  5. INSULIN [Concomitant]
     Route: 065
  6. ASPIRIN [Concomitant]
  7. EXCEDRIN (MIGRAINE) [Concomitant]
     Indication: PAIN
     Dosage: 1 PER DAY

REACTIONS (4)
  - BLOOD GLUCOSE DECREASED [None]
  - BLOOD GLUCOSE INCREASED [None]
  - HYPOGLYCAEMIA [None]
  - PRODUCT QUALITY ISSUE [None]
